FAERS Safety Report 8820109 (Version 3)
Quarter: 2014Q4

REPORT INFORMATION
  Report Type: Report from Study
  Country: CA (occurrence: CA)
  Receive Date: 20121001
  Receipt Date: 20141127
  Transmission Date: 20150529
  Serious: Yes (Other)
  Sender: FDA-Public Use
  Company Number: CA-UCBSA-067692

PATIENT
  Age: 30 Year
  Sex: Male
  Weight: 77.11 kg

DRUGS (7)
  1. HOMATROPINE [Concomitant]
     Active Substance: HOMATROPINE\HOMATROPINE HYDROBROMIDE
     Indication: UVEITIS
     Dosage: UNIT: %; OCCULAR DROPS
  2. PANTOLOC [Concomitant]
     Active Substance: PANTOPRAZOLE SODIUM
     Indication: PROPHYLAXIS
     Dosage: 40 MG, ONCE DAILY (QD)
     Route: 048
  3. CERTOLIZUMAB PEGOL [Suspect]
     Active Substance: CERTOLIZUMAB PEGOL
     Indication: ANKYLOSING SPONDYLITIS
     Dosage: 200 MG, EV 2 WEEKS(QOW)
     Route: 058
     Dates: start: 20111227
  4. METHOTREXATE [Concomitant]
     Active Substance: METHOTREXATE
     Indication: ANKYLOSING SPONDYLITIS
     Dosage: 10 MG, ONCE DAILY (QD)
     Route: 048
     Dates: start: 201109
  5. EURO-FOLIC [Concomitant]
     Indication: ANKYLOSING SPONDYLITIS
     Dosage: EXCEPT 1 DAY/WEEK
     Route: 048
     Dates: start: 201109
  6. PREDFORT [Concomitant]
     Indication: UVEITIS
     Dosage: 1 DROP, 1 %
  7. CERTOLIZUMAB PEGOL [Suspect]
     Active Substance: CERTOLIZUMAB PEGOL
     Dosage: 3 DOSE INTAKES
     Route: 058
     Dates: start: 20111115, end: 20111213

REACTIONS (5)
  - Depression [Not Recovered/Not Resolved]
  - Nasopharyngitis [Unknown]
  - Oral herpes [Not Recovered/Not Resolved]
  - Arthralgia [Not Recovered/Not Resolved]
  - Drug ineffective [Unknown]

NARRATIVE: CASE EVENT DATE: 201207
